FAERS Safety Report 21360109 (Version 2)
Quarter: 2022Q4

REPORT INFORMATION
  Report Type: Spontaneous
  Country: US (occurrence: US)
  Receive Date: 20220921
  Receipt Date: 20221020
  Transmission Date: 20230113
  Serious: No
  Sender: FDA-Public Use
  Company Number: US-BIOGEN-2022BI01156277

PATIENT
  Sex: Female

DRUGS (1)
  1. TECFIDERA [Suspect]
     Active Substance: DIMETHYL FUMARATE
     Indication: Multiple sclerosis
     Route: 050

REACTIONS (8)
  - Drug ineffective [Unknown]
  - Temperature intolerance [Unknown]
  - Confusional state [Unknown]
  - Gastric disorder [Unknown]
  - Multiple sclerosis relapse [Unknown]
  - Appetite disorder [Unknown]
  - Anxiety [Unknown]
  - Depression [Unknown]
